FAERS Safety Report 20732720 (Version 1)
Quarter: 2022Q2

REPORT INFORMATION
  Report Type: Spontaneous
  Country: None (occurrence: US)
  Receive Date: 20220420
  Receipt Date: 20220420
  Transmission Date: 20220720
  Serious: Yes (Other)
  Sender: FDA-Public Use
  Company Number: US-Valu Merchandisers Company-2127983

PATIENT
  Age: 12 Month
  Sex: Female

DRUGS (1)
  1. ACETAMINOPHEN [Suspect]
     Active Substance: ACETAMINOPHEN
     Indication: Accidental exposure to product
     Dates: start: 20220406, end: 20220406

REACTIONS (1)
  - Accidental exposure to product [None]
